FAERS Safety Report 19079192 (Version 1)
Quarter: 2021Q1

REPORT INFORMATION
  Report Type: Spontaneous
  Country: CA (occurrence: CA)
  Receive Date: 20210331
  Receipt Date: 20210331
  Transmission Date: 20210420
  Serious: Yes (Death, Hospitalization, Other)
  Sender: FDA-Public Use
  Company Number: CA-VALIDUS PHARMACEUTICALS LLC-CA-2021VAL000785

PATIENT
  Age: 80 Year
  Sex: Male
  Weight: 89 kg

DRUGS (11)
  1. ACTEMRA [Suspect]
     Active Substance: TOCILIZUMAB
     Indication: GIANT CELL ARTERITIS
     Dosage: 720 MG, Q4W;IV NOS
     Route: 065
     Dates: start: 2018, end: 2018
  2. ACTEMRA [Suspect]
     Active Substance: TOCILIZUMAB
     Indication: VASCULITIS
     Dosage: 712 MG, UNK
     Route: 040
  3. VITAMIN B12 [Concomitant]
     Active Substance: CYANOCOBALAMIN
     Route: 065
  4. ENALAPRIL [Concomitant]
     Active Substance: ENALAPRIL
  5. DOPAMINE [Suspect]
     Active Substance: DOPAMINE HYDROCHLORIDE
     Route: 065
  6. FUROSEMIDE. [Suspect]
     Active Substance: FUROSEMIDE
     Indication: PRODUCT USED FOR UNKNOWN INDICATION
  7. PREDNISON [Concomitant]
     Active Substance: PREDNISONE
  8. ROSUVASTATIN CALCIUM. [Concomitant]
     Active Substance: ROSUVASTATIN CALCIUM
  9. ALENDRONATE [Concomitant]
     Active Substance: ALENDRONATE SODIUM
  10. ALLOPURINOL. [Concomitant]
     Active Substance: ALLOPURINOL
  11. METFORMIN [Concomitant]
     Active Substance: METFORMIN HYDROCHLORIDE

REACTIONS (10)
  - Death [Fatal]
  - Fatigue [Fatal]
  - Wheezing [Fatal]
  - Infection [Fatal]
  - Ill-defined disorder [Fatal]
  - Pulmonary oedema [Fatal]
  - Generalised oedema [Fatal]
  - Dyspnoea [Fatal]
  - Peripheral swelling [Fatal]
  - Heart rate decreased [Fatal]

NARRATIVE: CASE EVENT DATE: 2018
